FAERS Safety Report 6045567-5 (Version None)
Quarter: 2009Q1

REPORT INFORMATION
  Report Type: 
  Country: None (occurrence: None)
  Receive Date: 20090121
  Receipt Date: 20090115
  Transmission Date: 20090719
  Serious: Yes (Other)
  Sender: FDA-Public Use
  Company Number: CA-ASTRAZENECA-2009UW01398

PATIENT
  Age: 61 Year
  Sex: Male

DRUGS (7)
  1. ENTOCORT CAPSULES [Suspect]
     Route: 065
  2. REMICADE [Suspect]
     Dosage: 1 DOSAGE FORM / 6 EVERY YEAR
     Route: 065
  3. ACCUPRIL [Concomitant]
  4. ACTONEL [Concomitant]
  5. ATENOLOL TABLETS, BP [Concomitant]
  6. HYDRALAZINE HCL [Concomitant]
  7. IMOVANE [Concomitant]

REACTIONS (1)
  - HERPES ZOSTER [None]
